FAERS Safety Report 18041467 (Version 5)
Quarter: 2020Q4

REPORT INFORMATION
  Report Type: Report from Study
  Country: None (occurrence: US)
  Receive Date: 20200719
  Receipt Date: 20201223
  Transmission Date: 20210113
  Serious: Yes (Hospitalization, Other)
  Sender: FDA-Public Use
  Company Number: US-ABBVIE-20K-163-3485948-00

PATIENT
  Age: 52 Year
  Sex: Female
  Weight: 46.31 kg

DRUGS (4)
  1. HUMIRA [Suspect]
     Active Substance: ADALIMUMAB
     Route: 058
     Dates: start: 2020
  2. LEXAPRO [Concomitant]
     Active Substance: ESCITALOPRAM OXALATE
     Indication: DEPRESSION
  3. HUMIRA [Suspect]
     Active Substance: ADALIMUMAB
     Indication: RHEUMATOID ARTHRITIS
     Route: 058
     Dates: start: 201911, end: 201912
  4. HUMIRA [Suspect]
     Active Substance: ADALIMUMAB
     Route: 058
     Dates: start: 201912, end: 2020

REACTIONS (15)
  - Body mass index decreased [Not Recovered/Not Resolved]
  - Dyspepsia [Unknown]
  - Gastrointestinal disorder [Not Recovered/Not Resolved]
  - Muscle spasms [Not Recovered/Not Resolved]
  - Surgery [Unknown]
  - Pain [Not Recovered/Not Resolved]
  - Weight abnormal [Unknown]
  - Gastrointestinal obstruction [Unknown]
  - Arthralgia [Unknown]
  - Intussusception [Not Recovered/Not Resolved]
  - Gastrointestinal tube insertion [Unknown]
  - Intestinal obstruction [Recovering/Resolving]
  - Therapeutic response shortened [Unknown]
  - Catheter placement [Unknown]
  - Weight decreased [Unknown]

NARRATIVE: CASE EVENT DATE: 20200316
